FAERS Safety Report 11810399 (Version 2)
Quarter: 2015Q4

REPORT INFORMATION
  Report Type: Report from Study
  Country: US (occurrence: US)
  Receive Date: 20151208
  Receipt Date: 20151215
  Transmission Date: 20160305
  Serious: Yes (Hospitalization, Other)
  Sender: FDA-Public Use
  Company Number: US-GILEAD-2015-0185842

PATIENT
  Sex: Male

DRUGS (2)
  1. AMBRISENTAN [Suspect]
     Active Substance: AMBRISENTAN
     Indication: PRODUCT USED FOR UNKNOWN INDICATION
     Dosage: 10 MG, QD
     Route: 065
     Dates: start: 20120628
  2. REMODULIN [Concomitant]
     Active Substance: TREPROSTINIL

REACTIONS (3)
  - Pulmonary hypertension [Unknown]
  - Dyspnoea [Unknown]
  - Unevaluable event [Unknown]
